FAERS Safety Report 5615957-0 (Version None)
Quarter: 2008Q1

REPORT INFORMATION
  Report Type: 
  Country: None (occurrence: None)
  Receive Date: 20080206
  Receipt Date: 20080204
  Transmission Date: 20080703
  Serious: Yes (Hospitalization)
  Sender: FDA-Public Use
  Company Number: DE-BOEHRINGER INGELHEIM GMBH, GERMANY-2008-BP-01662RO

PATIENT
  Age: 70 Year
  Sex: Female

DRUGS (6)
  1. CITALOPRAM HYDROBROMIDE [Suspect]
     Indication: DEPRESSIVE DELUSION
     Dates: start: 20060701, end: 20060901
  2. RISPERIDONE [Suspect]
     Indication: DEPRESSIVE DELUSION
     Dates: start: 20060701, end: 20060901
  3. COTRIMOXAZOLE [Suspect]
     Indication: CYSTITIS
  4. RAMIPRIL [Concomitant]
  5. NIFEDIPINE [Concomitant]
  6. CEPHALOSPORIN [Concomitant]
     Indication: CYSTITIS

REACTIONS (4)
  - ATRIOVENTRICULAR BLOCK FIRST DEGREE [None]
  - DRUG INTERACTION [None]
  - SINUS BRADYCARDIA [None]
  - TORSADE DE POINTES [None]
